FAERS Safety Report 20645328 (Version 1)
Quarter: 2022Q1

REPORT INFORMATION
  Report Type: Spontaneous
  Country: US (occurrence: None)
  Receive Date: 20220328
  Receipt Date: 20220328
  Transmission Date: 20220424
  Serious: Yes (Other)
  Sender: FDA-Public Use
  Company Number: None

PATIENT
  Age: 27 Year
  Sex: Female
  Weight: 78.75 kg

DRUGS (1)
  1. SUBOXONE [Suspect]
     Active Substance: BUPRENORPHINE HYDROCHLORIDE\NALOXONE HYDROCHLORIDE
     Indication: Drug therapy
     Dosage: OTHER QUANTITY : 1 8MG STRIP;?
     Route: 060
     Dates: start: 20100501, end: 20180505

REACTIONS (4)
  - Teeth brittle [None]
  - Tooth fracture [None]
  - Dental caries [None]
  - Tooth loss [None]

NARRATIVE: CASE EVENT DATE: 20150115
